FAERS Safety Report 5962002-3 (Version None)
Quarter: 2008Q4

REPORT INFORMATION
  Report Type: 
  Country: None (occurrence: None)
  Receive Date: 20081121
  Receipt Date: 20081110
  Transmission Date: 20090506
  Serious: Yes (Other)
  Sender: FDA-Public Use
  Company Number: US-ROCHE-596598

PATIENT
  Sex: Female

DRUGS (2)
  1. PEG-INTERFERON A-2A (RO 25-8310) [Suspect]
     Dosage: FORM: PRE FILLED SYRINGES
     Route: 065
     Dates: start: 20060912, end: 20070612
  2. RIBAVIRIN [Suspect]
     Route: 065
     Dates: start: 20060912, end: 20070612

REACTIONS (2)
  - COUGH [None]
  - PULMONARY FIBROSIS [None]
